FAERS Safety Report 18261266 (Version 4)
Quarter: 2021Q4

REPORT INFORMATION
  Report Type: Report from Study
  Country: FR (occurrence: FR)
  Receive Date: 20200914
  Receipt Date: 20211007
  Transmission Date: 20220303
  Serious: Yes (Disabling, Other)
  Sender: FDA-Public Use
  Company Number: ALCN2016FR003368

PATIENT
  Age: 83 Year
  Sex: Female
  Weight: 59 kg

DRUGS (20)
  1. BROLUCIZUMAB [Suspect]
     Active Substance: BROLUCIZUMAB
     Indication: Macular degeneration
     Dosage: UNK
     Route: 031
     Dates: start: 20160309, end: 20160504
  2. PINAVERIUM BROMURO [Concomitant]
     Indication: Prophylaxis
     Dosage: UNK
     Route: 048
     Dates: start: 1991
  3. EZETIMIBE [Concomitant]
     Active Substance: EZETIMIBE
     Indication: Hypercholesterolaemia
     Dosage: UNK
     Route: 048
     Dates: start: 2006
  4. BETAHISTINE [Concomitant]
     Active Substance: BETAHISTINE
     Indication: Dizziness
     Dosage: UNK
     Route: 048
     Dates: start: 2006
  5. POLYETHYLENE GLYCOLS [Concomitant]
     Active Substance: POLYETHYLENE GLYCOLS
     Indication: Constipation
     Dosage: UNK
     Route: 048
     Dates: start: 2006
  6. CHOLECALCIFEROL [Concomitant]
     Active Substance: CHOLECALCIFEROL
     Indication: General physical condition
     Dosage: UNK
     Route: 048
     Dates: start: 2013
  7. SOLIFENACIN SUCCINATE [Concomitant]
     Active Substance: SOLIFENACIN SUCCINATE
     Indication: Urinary tract infection
     Dosage: UNK
     Route: 048
     Dates: start: 2010
  8. FOSFOMYCIN TROMETHAMINE [Concomitant]
     Active Substance: FOSFOMYCIN TROMETHAMINE
     Indication: Urinary tract infection
     Dosage: UNK
     Route: 048
     Dates: start: 2014
  9. AMIODARONE HYDROCHLORIDE [Concomitant]
     Active Substance: AMIODARONE HYDROCHLORIDE
     Indication: General physical condition
     Dosage: UNK
     Route: 048
     Dates: start: 201601
  10. TROPICAMIDE [Concomitant]
     Active Substance: TROPICAMIDE
     Indication: Therapeutic procedure
     Dosage: UNK
     Route: 047
     Dates: start: 20160304
  11. BENOXINATE [Concomitant]
     Active Substance: BENOXINATE
     Indication: Therapeutic procedure
     Dosage: UNK
     Route: 047
     Dates: start: 20160304
  12. IODINE [Concomitant]
     Active Substance: IODINE
     Indication: Therapeutic procedure
     Dosage: UNK
     Route: 047
     Dates: start: 20160304
  13. FLUORESCEIN SODIUM [Concomitant]
     Active Substance: FLUORESCEIN SODIUM
     Indication: Therapeutic procedure
     Dosage: UNK
     Route: 047
     Dates: start: 20160304
  14. DEXAMETHASONE\OXYTETRACYCLINE [Concomitant]
     Active Substance: DEXAMETHASONE\OXYTETRACYCLINE
     Indication: Conjunctivitis
     Dosage: UNK
     Route: 065
  15. DEXAMETHASONE SODIUM PHOSPHATE\NEOMYCIN SULFATE [Concomitant]
     Active Substance: DEXAMETHASONE SODIUM PHOSPHATE\NEOMYCIN SULFATE
     Indication: Conjunctivitis
     Dosage: UNK
     Route: 065
  16. ARTELAC [Concomitant]
     Indication: Conjunctivitis
     Dosage: 1 DROP 4 TIMES PER DAY ON BOTH EYES
     Route: 065
  17. AZITHROMYCIN ANHYDROUS [Concomitant]
     Active Substance: AZITHROMYCIN ANHYDROUS
     Indication: Conjunctivitis
     Dosage: 1 DROP ON THE MORNING AND ON THE EVENING
     Route: 065
  18. BORIC ACID\SODIUM BORATE [Concomitant]
     Active Substance: BORIC ACID\SODIUM BORATE
     Indication: Product used for unknown indication
     Dosage: 1 DOSE FOR OCULAR WASHING ON THE MORNING AND ON THE EVENING
     Route: 065
  19. ATARAX [Concomitant]
     Active Substance: HYDROXYZINE HYDROCHLORIDE
     Indication: Product used for unknown indication
     Dosage: 1 TABLET ON THE MORNING AND ON THE EVENING 2 DAYS BEFORE, ON D-DAY AND 1 DAY AFTER THE ANGIOGRAPHY
     Route: 065
  20. LEVOCETIRIZINE DIHYDROCHLORIDE [Concomitant]
     Active Substance: LEVOCETIRIZINE DIHYDROCHLORIDE
     Indication: Product used for unknown indication
     Dosage: 1 TABLET BEFORE GOING TO SLEEP 2 DAYS BEFORE, ON D-DAY AND 1 DAY AFTER THE ANGIOGRAPHY
     Route: 065

REACTIONS (4)
  - Retinal occlusive vasculitis [Unknown]
  - Blindness [Unknown]
  - Retinal artery embolism [Not Recovered/Not Resolved]
  - Anterior chamber inflammation [Recovered/Resolved]

NARRATIVE: CASE EVENT DATE: 20160512
